FAERS Safety Report 6339830-8 (Version None)
Quarter: 2009Q3

REPORT INFORMATION
  Report Type: 
  Country: None (occurrence: None)
  Receive Date: 20090903
  Receipt Date: 20090831
  Transmission Date: 20100115
  Serious: Yes (Death, Other)
  Sender: FDA-Public Use
  Company Number: PHHY2009FR26194

PATIENT
  Sex: Male
  Weight: 83 kg

DRUGS (8)
  1. EXELON [Suspect]
     Indication: NEURODEGENERATIVE DISORDER
     Dosage: 4.6 MG, QD
     Route: 062
     Dates: start: 20090313, end: 20090501
  2. EXELON [Suspect]
     Dosage: 9.5 MG, QD
     Route: 062
  3. SINTROM [Concomitant]
     Indication: PHLEBITIS
  4. PLAVIX [Concomitant]
     Indication: CEREBROVASCULAR ACCIDENT
     Dosage: UNK
     Dates: start: 20080101
  5. CHONDROSULF [Concomitant]
     Indication: OSTEOARTHRITIS
     Dosage: 1 DF, BID
     Dates: start: 20060101
  6. HOMEOPATHIC PREPARATIONS [Concomitant]
     Dosage: UNK
     Dates: start: 20000101
  7. TADENAN [Concomitant]
     Indication: PROSTATIC ADENOMA
     Dosage: 1 DF/DAY
     Dates: start: 20050101
  8. PERMIXON [Concomitant]
     Indication: PROSTATIC ADENOMA
     Dosage: 1 DF/DAY
     Dates: start: 20050101

REACTIONS (15)
  - APHASIA [None]
  - BRAIN OEDEMA [None]
  - CEREBRAL THROMBOSIS [None]
  - CEREBROVASCULAR ACCIDENT [None]
  - CHOLESTASIS [None]
  - CONFUSIONAL STATE [None]
  - CONSTIPATION [None]
  - DISORIENTATION [None]
  - DYSPHAGIA [None]
  - FACIAL PALSY [None]
  - HEMIPARESIS [None]
  - HYPERGLYCAEMIA [None]
  - LUNG DISORDER [None]
  - MOTOR DYSFUNCTION [None]
  - RESPIRATORY DISORDER [None]
